FAERS Safety Report 16460106 (Version 1)
Quarter: 2019Q2

REPORT INFORMATION
  Report Type: Spontaneous
  Country: US (occurrence: US)
  Receive Date: 20190620
  Receipt Date: 20190620
  Transmission Date: 20190711
  Serious: Yes (Death, Other)
  Sender: FDA-Public Use
  Company Number: US-ASTRAZENECA-2018SF00539

PATIENT
  Age: 19892 Day
  Sex: Male

DRUGS (16)
  1. PREVACID [Suspect]
     Active Substance: LANSOPRAZOLE
     Indication: GASTROOESOPHAGEAL REFLUX DISEASE
     Route: 065
     Dates: start: 2008, end: 2014
  2. PREVACID [Suspect]
     Active Substance: LANSOPRAZOLE
     Indication: GASTROOESOPHAGEAL REFLUX DISEASE
     Dosage: 30 MGTWO TIMES A DAY (GENERIC)
     Route: 048
     Dates: start: 2008, end: 2014
  3. SENSIPAR [Concomitant]
     Active Substance: CINACALCET HYDROCHLORIDE
  4. VENTOLIN [Concomitant]
     Active Substance: ALBUTEROL SULFATE
  5. DIAZEPAM. [Concomitant]
     Active Substance: DIAZEPAM
  6. PRILOSEC [Suspect]
     Active Substance: OMEPRAZOLE MAGNESIUM
     Indication: GASTROOESOPHAGEAL REFLUX DISEASE
     Route: 048
     Dates: start: 2008, end: 2014
  7. AMITRIPTYLINE [Concomitant]
     Active Substance: AMITRIPTYLINE
  8. CIPROFLOXACIN. [Concomitant]
     Active Substance: CIPROFLOXACIN
  9. TACROLIMUS. [Concomitant]
     Active Substance: TACROLIMUS
  10. CARVEDILOL. [Concomitant]
     Active Substance: CARVEDILOL
  11. FUROSEMIDE. [Concomitant]
     Active Substance: FUROSEMIDE
  12. FLUTICASONE. [Concomitant]
     Active Substance: FLUTICASONE
  13. CLONIDINE. [Concomitant]
     Active Substance: CLONIDINE
  14. NEXIUM [Suspect]
     Active Substance: ESOMEPRAZOLE MAGNESIUM
     Route: 048
  15. FOSRENOL [Concomitant]
     Active Substance: LANTHANUM CARBONATE
  16. ALLOPURINOL. [Concomitant]
     Active Substance: ALLOPURINOL

REACTIONS (2)
  - End stage renal disease [Unknown]
  - Renal failure [Unknown]

NARRATIVE: CASE EVENT DATE: 20070110
